FAERS Safety Report 4399638-X (Version None)
Quarter: 2004Q3

REPORT INFORMATION
  Report Type: 
  Country: None (occurrence: None)
  Receive Date: 20040713
  Receipt Date: 20040707
  Transmission Date: 20050211
  Serious: Yes (Hospitalization)
  Sender: FDA-Public Use
  Company Number: S04-USA-03272-01

PATIENT
  Age: 75 Year
  Sex: Female

DRUGS (3)
  1. NAMENDA [Suspect]
     Indication: DEMENTIA ALZHEIMER'S TYPE
     Dosage: UNK
     Route: 065
  2. CALCIUM CHANNEL BLOCKER (NOS) [Concomitant]
  3. CLONIDINE HCL [Concomitant]

REACTIONS (2)
  - GAIT DISTURBANCE [None]
  - HYPONATRAEMIA [None]
